FAERS Safety Report 9226281 (Version 1)
Quarter: 2013Q2

REPORT INFORMATION
  Report Type: Spontaneous
  Country: US (occurrence: US)
  Receive Date: 20130411
  Receipt Date: 20130411
  Transmission Date: 20140414
  Serious: No
  Sender: FDA-Public Use
  Company Number: US-B.I. PHARMACEUTICALS,INC./RIDGEFIELD-2013-BI-09038BP

PATIENT
  Age: 78 Year
  Sex: Male
  Weight: 104 kg

DRUGS (1)
  1. PRADAXA [Suspect]
     Indication: ATRIAL FIBRILLATION
     Dosage: 300 MG
     Route: 048
     Dates: start: 2010

REACTIONS (2)
  - Lumbar spinal stenosis [Not Recovered/Not Resolved]
  - Arthralgia [Not Recovered/Not Resolved]
